FAERS Safety Report 7526709-9 (Version None)
Quarter: 2011Q2

REPORT INFORMATION
  Report Type: 
  Country: None (occurrence: None)
  Receive Date: 20110606
  Receipt Date: 20110526
  Transmission Date: 20111010
  Serious: Yes (Other)
  Sender: FDA-Public Use
  Company Number: BR-ASTRAZENECA-2009SE28214

PATIENT
  Age: 33 Year
  Sex: Female
  Weight: 76 kg

DRUGS (8)
  1. DEPAKOTE [Concomitant]
     Indication: MAJOR DEPRESSION
     Route: 048
     Dates: start: 20080101
  2. TIMOLOL MALEATE [Concomitant]
     Indication: GLAUCOMA
     Route: 047
     Dates: start: 20110201
  3. SEROQUEL XR [Suspect]
     Indication: MAJOR DEPRESSION
     Route: 048
     Dates: start: 20091118, end: 20100101
  4. SEROQUEL XR [Suspect]
     Route: 048
     Dates: start: 20110419
  5. VENLAFAXINE [Concomitant]
     Indication: MAJOR DEPRESSION
  6. RISPERIDONE [Suspect]
     Route: 048
  7. CLONAZEPAM [Concomitant]
     Indication: MAJOR DEPRESSION
     Route: 048
  8. VALPROIC ACID [Concomitant]
     Indication: MAJOR DEPRESSION
     Route: 048

REACTIONS (14)
  - TINNITUS [None]
  - DRY MOUTH [None]
  - NIGHTMARE [None]
  - DRUG PRESCRIBING ERROR [None]
  - INSOMNIA [None]
  - FEELING OF DESPAIR [None]
  - SOMNOLENCE [None]
  - ASTHENIA [None]
  - DIZZINESS [None]
  - AMENORRHOEA [None]
  - INTENTIONAL SELF-INJURY [None]
  - DEPRESSED MOOD [None]
  - CONSTIPATION [None]
  - SUICIDAL IDEATION [None]
